FAERS Safety Report 8234481-2 (Version None)
Quarter: 2012Q1

REPORT INFORMATION
  Report Type: 
  Country: None (occurrence: None)
  Receive Date: 20120322
  Receipt Date: 20120312
  Transmission Date: 20120608
  Serious: No
  Sender: FDA-Public Use
  Company Number: 2010SP065136

PATIENT
  Age: 28 Year
  Sex: Male

DRUGS (4)
  1. REBETOL [Suspect]
     Indication: HEPATITIS B
     Route: 048
  2. REBETOL [Suspect]
     Indication: HEPATITIS C
     Route: 048
  3. PEG-INTRON [Suspect]
     Indication: HEPATITIS C
     Route: 058
  4. PEG-INTRON [Suspect]
     Indication: HEPATITIS B
     Route: 058

REACTIONS (2)
  - HEPATITIS B [None]
  - CONDITION AGGRAVATED [None]
